FAERS Safety Report 9039655 (Version 1)
Quarter: 2013Q1

REPORT INFORMATION
  Report Type: Report from Study
  Country: US (occurrence: US)
  Receive Date: 20130129
  Receipt Date: 20130129
  Transmission Date: 20140127
  Serious: Yes (Hospitalization)
  Sender: FDA-Public Use
  Company Number: US-ABBOTT-12P-163-0912481-00

PATIENT
  Age: 55 Year
  Sex: Male

DRUGS (3)
  1. HUMIRA 40 MG/0.8 ML PEN [Suspect]
     Indication: PSORIATIC ARTHROPATHY
     Dates: start: 201110
  2. HUMIRA 40 MG/0.8 ML PEN [Suspect]
     Dates: start: 20120217
  3. UNKNOWN MEDICATIONS [Concomitant]
     Indication: PRODUCT USED FOR UNKNOWN INDICATION

REACTIONS (7)
  - Localised infection [Recovering/Resolving]
  - Neck pain [Recovering/Resolving]
  - Laceration [Recovering/Resolving]
  - Carbon dioxide increased [Unknown]
  - Wrong technique in drug usage process [Unknown]
  - Pain in extremity [Recovered/Resolved]
  - Incorrect dose administered [Unknown]
